FAERS Safety Report 8831911 (Version 1)
Quarter: 2012Q4

REPORT INFORMATION
  Report Type: 
  Country: US (occurrence: US)
  Receive Date: 20121009
  Receipt Date: 20121009
  Transmission Date: 20130627
  Serious: Yes (Other)
  Sender: FDA-Public Use
  Company Number: US-BAYER-2012-103980

PATIENT

DRUGS (1)
  1. ALEVE CAPLET/TABLET,MIDOL EXTENDED RELIEF CAPLET [Suspect]
     Dosage: UNK

REACTIONS (7)
  - Foreign body [Recovered/Resolved]
  - Oesophageal ulcer [Recovering/Resolving]
  - Oesophagitis [Recovering/Resolving]
  - Throat tightness [Recovering/Resolving]
  - Oropharyngeal pain [Recovering/Resolving]
  - Chest pain [Recovering/Resolving]
  - Oesophageal infection [None]
